FAERS Safety Report 20641889 (Version 2)
Quarter: 2022Q3

REPORT INFORMATION
  Report Type: Spontaneous
  Country: None (occurrence: CN)
  Receive Date: 20220328
  Receipt Date: 20220902
  Transmission Date: 20221027
  Serious: Yes (Other)
  Sender: FDA-Public Use
  Company Number: CN-Jiangsu Hengrui Medicine Co., Ltd.-2127152

PATIENT
  Age: 36 Year
  Sex: Male
  Weight: 36 kg

DRUGS (5)
  1. CISATRACURIUM BESYLATE [Suspect]
     Active Substance: CISATRACURIUM BESYLATE
     Indication: Induction of anaesthesia
     Route: 041
     Dates: start: 20210223, end: 20210223
  2. MIDAZOLAM HYDROCHLORIDE [Suspect]
     Active Substance: MIDAZOLAM HYDROCHLORIDE
     Route: 041
     Dates: start: 20210223, end: 20210223
  3. PENEHYCLIDINE HYDROCHLORIDE [Suspect]
     Active Substance: PENEHYCLIDINE HYDROCHLORIDE
     Route: 041
     Dates: start: 20210223, end: 20210223
  4. SUFENTANIL CITRATE [Suspect]
     Active Substance: SUFENTANIL CITRATE
     Route: 041
     Dates: start: 20210223, end: 20210223
  5. PROPOFOL [Suspect]
     Active Substance: PROPOFOL
     Route: 041
     Dates: start: 20210223, end: 20210223

REACTIONS (1)
  - Bronchial hyperreactivity [Recovered/Resolved]

NARRATIVE: CASE EVENT DATE: 20210223
